FAERS Safety Report 4475561-7 (Version None)
Quarter: 2004Q4

REPORT INFORMATION
  Report Type: 
  Country: None (occurrence: None)
  Receive Date: 20041014
  Receipt Date: 20041014
  Transmission Date: 20050328
  Serious: Yes (Other)
  Sender: FDA-Public Use
  Company Number: None

PATIENT
  Age: 25 Year
  Sex: Male
  Weight: 63.5036 kg

DRUGS (1)
  1. ZOLOFT [Suspect]
     Indication: DEPRESSION
     Dosage: 50.G 1 DAILY ORAL
     Route: 048
     Dates: start: 20031210, end: 20041010

REACTIONS (2)
  - DIZZINESS [None]
  - MOTOR DYSFUNCTION [None]
